FAERS Safety Report 6177569-2 (Version None)
Quarter: 2009Q2

REPORT INFORMATION
  Report Type: 
  Country: None (occurrence: None)
  Receive Date: 20090501
  Receipt Date: 20090501
  Transmission Date: 20091009
  Serious: Yes (Life-Threatening, Hospitalization)
  Sender: FDA-Public Use
  Company Number: None

PATIENT
  Age: 51 Year
  Sex: Male

DRUGS (7)
  1. LEVOFLOXACIN [Suspect]
     Indication: WOUND INFECTION
     Dosage: 500 MG IV X 1
     Route: 042
     Dates: start: 20090301
  2. HEPARIN [Concomitant]
  3. METOCLOPRAMIDE [Concomitant]
  4. FLAGYL [Concomitant]
  5. RANITIDINE [Concomitant]
  6. VANCOMYCIN HCL [Concomitant]
  7. MORPHINE [Concomitant]

REACTIONS (3)
  - CHEST DISCOMFORT [None]
  - DYSPNOEA [None]
  - PARAESTHESIA ORAL [None]
